FAERS Safety Report 10975047 (Version 1)
Quarter: 2015Q1

REPORT INFORMATION
  Report Type: Spontaneous
  Country: US (occurrence: None)
  Receive Date: 20150226
  Receipt Date: 20150226
  Transmission Date: 20150721
  Serious: No
  Sender: FDA-Public Use
  Company Number: TPA2009A01492

PATIENT
  Age: 67 Year
  Sex: Male

DRUGS (3)
  1. TRICOR [Concomitant]
     Active Substance: FENOFIBRATE
  2. ULORIC [Suspect]
     Active Substance: FEBUXOSTAT
     Indication: GOUTY ARTHRITIS
     Route: 048
     Dates: start: 20090514, end: 20090612
  3. COZAAR [Concomitant]
     Active Substance: LOSARTAN POTASSIUM

REACTIONS (2)
  - Renal impairment [None]
  - Condition aggravated [None]

NARRATIVE: CASE EVENT DATE: 20090612
